FAERS Safety Report 5987483-0 (Version None)
Quarter: 2008Q4

REPORT INFORMATION
  Report Type: 
  Country: None (occurrence: None)
  Receive Date: 20081209
  Receipt Date: 20081126
  Transmission Date: 20090506
  Serious: Yes (Other)
  Sender: FDA-Public Use
  Company Number: JP-ASTRAZENECA-2008SE05596

PATIENT
  Age: 86 Year
  Sex: Male
  Weight: 46 kg

DRUGS (10)
  1. BLOPRESS [Suspect]
     Indication: CARDIAC FAILURE CHRONIC
     Route: 048
     Dates: start: 20070727, end: 20070907
  2. LASIX [Suspect]
     Indication: CARDIAC FAILURE CHRONIC
     Route: 048
  3. LASIX [Suspect]
     Route: 048
  4. ARTIST [Concomitant]
     Indication: CARDIAC FAILURE CHRONIC
     Route: 048
  5. GASTER D [Concomitant]
     Indication: GASTRITIS
     Route: 048
  6. SELBEX [Concomitant]
     Indication: GASTRITIS
     Route: 048
  7. MAGMITT [Concomitant]
     Indication: CONSTIPATION
     Route: 048
  8. ALOSENN [Concomitant]
     Indication: CONSTIPATION
     Route: 048
  9. HALCION [Concomitant]
     Indication: INSOMNIA
     Route: 048
  10. ARGAMATE [Concomitant]
     Indication: HYPERKALAEMIA
     Route: 048

REACTIONS (3)
  - BLOOD PRESSURE DECREASED [None]
  - DEHYDRATION [None]
  - RENAL IMPAIRMENT [None]
